FAERS Safety Report 6947070-4 (Version None)
Quarter: 2010Q3

REPORT INFORMATION
  Report Type: 
  Country: None (occurrence: None)
  Receive Date: 20100825
  Receipt Date: 20100817
  Transmission Date: 20110219
  Serious: Yes (Disabling)
  Sender: FDA-Public Use
  Company Number: 673927

PATIENT
  Age: 47 Year
  Sex: Male
  Weight: 86 kg

DRUGS (15)
  1. CYTARABINE [Suspect]
     Indication: CHEMOTHERAPY
     Dosage: 6 G GRAM(S), 1 DAY, INTRAVENOUS
     Route: 042
     Dates: start: 20100614, end: 20100618
  2. ACYCLOVIR SODIUM [Concomitant]
  3. (AMBAZONE) [Concomitant]
  4. AZITHROMYCIN [Concomitant]
  5. (CASPOFUNGIN) [Concomitant]
  6. CIPROFLOXACIN [Concomitant]
  7. (GABAPENTIN) [Concomitant]
  8. (LINEZOLID) [Concomitant]
  9. METRONIDAZOLE [Concomitant]
  10. MIRTAZAPINE [Concomitant]
  11. (OMEPRAZOLE) [Concomitant]
  12. ACETAMINOPHEN [Concomitant]
  13. (TAZOCIN) [Concomitant]
  14. VANCOMYCIN [Concomitant]
  15. VORICONAZOLE [Concomitant]

REACTIONS (3)
  - ACTIVITIES OF DAILY LIVING IMPAIRED [None]
  - DEMYELINATING POLYNEUROPATHY [None]
  - MUSCULAR WEAKNESS [None]
